FAERS Safety Report 5587827-8 (Version None)
Quarter: 2007Q4

REPORT INFORMATION
  Report Type: 
  Country: None (occurrence: None)
  Receive Date: 20071211
  Receipt Date: 20070821
  Transmission Date: 20080405
  Serious: No
  Sender: FDA-Public Use
  Company Number: 002#2#2007-00152

PATIENT
  Sex: Female

DRUGS (16)
  1. NEUPRO [Suspect]
     Indication: PARKINSON'S DISEASE
     Dosage: 6MG/24H,1 IN 1 D,TRANSDERMAL
     Route: 062
     Dates: start: 20070501
  2. ZELAPAR [Concomitant]
  3. STALEVO [Concomitant]
  4. NAMENDA [Concomitant]
  5. SYNTHROID [Concomitant]
  6. EVISTA [Concomitant]
  7. GALANTAMINE HYDROBROMIDE [Concomitant]
  8. FORTEO [Concomitant]
  9. GINGER CANDY [Concomitant]
  10. MECLIZINE [Concomitant]
  11. ZOFRAN [Concomitant]
  12. CALAMINE LOTION [Concomitant]
  13. CETAFIL CREAM [Concomitant]
  14. LUBRIDERM [Concomitant]
  15. HYDROCORTISONE CREAM MAXIMUM STRENGHT [Concomitant]
  16. DESITIN LOTION [Concomitant]

REACTIONS (3)
  - APPLICATION SITE VESICLES [None]
  - RASH ERYTHEMATOUS [None]
  - RASH PRURITIC [None]
